FAERS Safety Report 15423011 (Version 1)
Quarter: 2018Q4

REPORT INFORMATION
  Report Type: Spontaneous
  Country: JP (occurrence: JP)
  Receive Date: 20180925
  Receipt Date: 20180925
  Transmission Date: 20190204
  Serious: Yes (Hospitalization)
  Sender: FDA-Public Use
  Company Number: JP-TEVA-2018-JP-005257J

PATIENT
  Age: 50 Year
  Sex: Female

DRUGS (1)
  1. CARVEDILOL TABLET 10MG ^TEVA^ [Suspect]
     Active Substance: CARVEDILOL
     Indication: PRODUCT USED FOR UNKNOWN INDICATION
     Route: 065
     Dates: start: 201709, end: 201710

REACTIONS (1)
  - Drug-induced liver injury [Unknown]
